FAERS Safety Report 12564520 (Version 3)
Quarter: 2016Q3

REPORT INFORMATION
  Report Type: Spontaneous
  Country: IT (occurrence: IT)
  Receive Date: 20160718
  Receipt Date: 20160818
  Transmission Date: 20161109
  Serious: Yes (Hospitalization)
  Sender: FDA-Public Use
  Company Number: IT-ROCHE-1795703

PATIENT
  Age: 64 Year
  Sex: Male

DRUGS (4)
  1. PLASIL [Concomitant]
     Active Substance: METOCLOPRAMIDE HYDROCHLORIDE
     Dosage: ^10 MG TABLET^ 24 TABLETS
     Route: 048
     Dates: start: 20160625, end: 20160627
  2. AVASTIN [Suspect]
     Active Substance: BEVACIZUMAB
     Indication: COLON CANCER METASTATIC
     Route: 042
     Dates: start: 20160610, end: 20160706
  3. GRANISETRON [Concomitant]
     Active Substance: GRANISETRON
     Dosage: 2MG
     Route: 048
     Dates: start: 20160625
  4. SOLDESAM [Concomitant]
     Active Substance: DEXAMETHASONE
     Dosage: 4 MG/ML SOLUTION FOR INJECTION^ 3 VIALS OF 1 ML
     Route: 030
     Dates: start: 20160626, end: 20160627

REACTIONS (3)
  - Deep vein thrombosis [Recovering/Resolving]
  - Pain in extremity [Recovering/Resolving]
  - Peripheral swelling [Recovering/Resolving]

NARRATIVE: CASE EVENT DATE: 20160706
